FAERS Safety Report 8555450-9 (Version None)
Quarter: 2012Q3

REPORT INFORMATION
  Report Type: 
  Country: None (occurrence: None)
  Receive Date: 20120731
  Receipt Date: 20111005
  Transmission Date: 20120928
  Serious: No
  Sender: FDA-Public Use
  Company Number: US-ASTRAZENECA-2011SE12980

PATIENT
  Age: 75 Year
  Sex: Female
  Weight: 48.1 kg

DRUGS (1)
  1. SEROQUEL [Suspect]
     Indication: INSOMNIA
     Route: 048
     Dates: start: 20100101

REACTIONS (6)
  - INSOMNIA [None]
  - DRUG DOSE OMISSION [None]
  - INCREASED APPETITE [None]
  - WEIGHT INCREASED [None]
  - OFF LABEL USE [None]
  - PSYCHOMOTOR HYPERACTIVITY [None]
